FAERS Safety Report 18723746 (Version 6)
Quarter: 2021Q1

REPORT INFORMATION
  Report Type: Spontaneous
  Country: US (occurrence: US)
  Receive Date: 20210111
  Receipt Date: 20210224
  Transmission Date: 20210419
  Serious: Yes (Hospitalization)
  Sender: FDA-Public Use
  Company Number: US-B.I. PHARMACEUTICALS,INC./RIDGEFIELD-2021-BI-075285

PATIENT
  Age: 66 Year
  Sex: Male

DRUGS (1)
  1. COMBIVENT [Suspect]
     Active Substance: ALBUTEROL SULFATE\IPRATROPIUM BROMIDE
     Indication: CHRONIC OBSTRUCTIVE PULMONARY DISEASE
     Dosage: 1 INHALATION QID, NOT TO EXCEED 6 INHALATIONS PER 24 HRS?ONE SPRAY 4 TIMES A DAY
     Route: 065
     Dates: start: 2018

REACTIONS (6)
  - Peripheral swelling [Unknown]
  - Chronic obstructive pulmonary disease [Not Recovered/Not Resolved]
  - Blister [Unknown]
  - Intentional overdose [Not Recovered/Not Resolved]
  - Product quality issue [Unknown]
  - Skin exfoliation [Unknown]

NARRATIVE: CASE EVENT DATE: 20210114
